FAERS Safety Report 17237932 (Version 1)
Quarter: 2020Q1

REPORT INFORMATION
  Report Type: Report from Study
  Country: GB (occurrence: GB)
  Receive Date: 20200106
  Receipt Date: 20200106
  Transmission Date: 20200409
  Serious: Yes (Hospitalization)
  Sender: FDA-Public Use
  Company Number: GB-PACIRA-201900309

PATIENT
  Age: 70 Year

DRUGS (10)
  1. AMITRIPTYLINE [Concomitant]
     Active Substance: AMITRIPTYLINE
     Indication: NEURALGIA
     Dosage: 50 MG 2 OD, START DATE APR-2018
     Route: 048
  2. CARBOCISTEINE [Concomitant]
     Active Substance: CARBOCYSTEINE
     Indication: ASTHMA
     Dosage: 375 MG 2 TDS, START DATE OCT-2017
     Route: 048
  3. TERBUTALINE [Concomitant]
     Active Substance: TERBUTALINE
     Indication: ASTHMA
     Dosage: 100 MCG QDS, START DATE OCT-2017
     Route: 048
  4. ELLIPTA [Concomitant]
     Indication: ASTHMA
     Dosage: 184 MCG 2 OD, START DATE JAN-2018
     Route: 048
  5. TEMAZEPAM. [Concomitant]
     Active Substance: TEMAZEPAM
     Indication: INSOMNIA
     Dosage: 20 MG DAILY, START DATE OCT-2017
     Route: 048
  6. RANITIDINE. [Concomitant]
     Active Substance: RANITIDINE
     Indication: PROPHYLAXIS
     Dosage: 300 MG DAILY, START DATE OCT-2017
     Route: 048
  7. PREDNISOLONE. [Concomitant]
     Active Substance: PREDNISOLONE
     Indication: ASTHMA
     Dosage: 5 MG AS DIRECTED, START DATE OCT-2017
     Route: 048
  8. EXPAREL [Suspect]
     Active Substance: BUPIVACAINE
     Indication: POSTOPERATIVE ANALGESIA
     Dosage: 266 MG OF EXPAREL WITH 100 MG BUPIVACAINE HCL EXPANDED TO 120 ML WITH NORMAL SALINE
     Route: 052
     Dates: start: 20180502, end: 20180502
  9. ALENDRONIC ACID [Concomitant]
     Active Substance: ALENDRONIC ACID
     Indication: CALCIUM DEFICIENCY
     Dosage: 70 MG 1 WEEKLY, START DATE OCT-2017
     Route: 048
  10. BUPIVACAINE HYDROCHLORIDE. [Suspect]
     Active Substance: BUPIVACAINE HYDROCHLORIDE
     Indication: POSTOPERATIVE ANALGESIA
     Route: 052
     Dates: start: 20180502, end: 20180502

REACTIONS (1)
  - Post procedural swelling [Recovered/Resolved]

NARRATIVE: CASE EVENT DATE: 20180504
